FAERS Safety Report 18652481 (Version 1)
Quarter: 2020Q4

REPORT INFORMATION
  Report Type: Spontaneous
  Country: IT (occurrence: IT)
  Receive Date: 20201223
  Receipt Date: 20201223
  Transmission Date: 20210114
  Serious: Yes (Other)
  Sender: FDA-Public Use
  Company Number: IT-AMGEN-ITASP2020206872

PATIENT
  Age: 69 Year
  Sex: Male

DRUGS (6)
  1. CLAVULANIC ACID [Suspect]
     Active Substance: CLAVULANIC ACID
     Indication: APHTHOUS ULCER
     Dosage: UNK
     Route: 065
  2. ECONAZOLE. [Suspect]
     Active Substance: ECONAZOLE NITRATE
     Indication: CANDIDA INFECTION
     Dosage: UNK
     Route: 065
  3. AMOXICILLIN. [Suspect]
     Active Substance: AMOXICILLIN
     Indication: APHTHOUS ULCER
     Dosage: UNK
     Route: 065
  4. OXYCODONE [Suspect]
     Active Substance: OXYCODONE
     Indication: APHTHOUS ULCER
     Route: 065
  5. BLINATUMOMAB [Suspect]
     Active Substance: BLINATUMOMAB
     Indication: ACUTE LYMPHOCYTIC LEUKAEMIA
     Dosage: UNK
     Route: 065
  6. MORPHINE [Suspect]
     Active Substance: MORPHINE
     Indication: APHTHOUS ULCER
     Dosage: UNK
     Route: 065

REACTIONS (4)
  - Infective glossitis [Recovering/Resolving]
  - Palatal disorder [Recovered/Resolved]
  - Dehydration [Unknown]
  - Dry mouth [Recovered/Resolved]
